FAERS Safety Report 8220391-3 (Version None)
Quarter: 2012Q1

REPORT INFORMATION
  Report Type: 
  Country: None (occurrence: None)
  Receive Date: 20120320
  Receipt Date: 20120309
  Transmission Date: 20120608
  Serious: Yes (Hospitalization)
  Sender: FDA-Public Use
  Company Number: US-JNJFOC-20120302493

PATIENT
  Sex: Male

DRUGS (2)
  1. XARELTO [Suspect]
     Indication: HIP ARTHROPLASTY
     Route: 048
     Dates: start: 20120221, end: 20120301
  2. NUCYNTA [Suspect]
     Indication: PROCEDURAL PAIN
     Dates: end: 20120227

REACTIONS (2)
  - OEDEMA PERIPHERAL [None]
  - RASH GENERALISED [None]
